FAERS Safety Report 7435265-5 (Version None)
Quarter: 2011Q2

REPORT INFORMATION
  Report Type: 
  Country: None (occurrence: None)
  Receive Date: 20110425
  Receipt Date: 20110416
  Transmission Date: 20111010
  Serious: Yes (Death)
  Sender: FDA-Public Use
  Company Number: PHHY2011US33443

PATIENT
  Sex: Female
  Weight: 43.2 kg

DRUGS (1)
  1. EXJADE [Suspect]
     Indication: NEOPLASM
     Dosage: 1250 MG DAILY
     Route: 048
     Dates: start: 20100426, end: 20110317

REACTIONS (1)
  - CARDIAC DISORDER [None]
